FAERS Safety Report 10076939 (Version 4)
Quarter: 2014Q2

REPORT INFORMATION
  Report Type: Spontaneous
  Country: KR (occurrence: KR)
  Receive Date: 20140414
  Receipt Date: 20140527
  Transmission Date: 20141212
  Serious: Yes (Death, Other)
  Sender: FDA-Public Use
  Company Number: KR-PFIZER INC-2014103315

PATIENT
  Age: 64 Year
  Sex: Female

DRUGS (4)
  1. SIROLIMUS [Suspect]
     Indication: IMMUNOSUPPRESSION
     Dosage: 2 MG, 1X/DAY
  2. GEMCITABINE HYDROCHLORIDE [Suspect]
     Indication: LUNG ADENOCARCINOMA STAGE IV
     Dosage: 1250 MG/M2, EVERY 3 WEEKS
  3. CISPLATIN [Suspect]
     Dosage: 75 MG/M2, EVERY 3 WEEKS
  4. SIMVASTATIN [Interacting]
     Indication: DYSLIPIDAEMIA
     Dosage: 20 MG, 1X/DAY
     Dates: start: 1989

REACTIONS (8)
  - Drug interaction [Fatal]
  - Rhabdomyolysis [Fatal]
  - Septic shock [Fatal]
  - Disseminated intravascular coagulation [Unknown]
  - Renal failure acute [Unknown]
  - Diarrhoea [Unknown]
  - Urinary tract infection [Unknown]
  - Asthenia [Recovered/Resolved]
